FAERS Safety Report 16123963 (Version 2)
Quarter: 2019Q2

REPORT INFORMATION
  Report Type: Spontaneous
  Country: CO (occurrence: CO)
  Receive Date: 20190327
  Receipt Date: 20190517
  Transmission Date: 20190711
  Serious: Yes (Other)
  Sender: FDA-Public Use
  Company Number: CO-PFIZER INC-2019127957

PATIENT
  Age: 4 Year
  Sex: Male

DRUGS (1)
  1. GENOTROPIN [Suspect]
     Active Substance: SOMATROPIN
     Indication: GROWTH HORMONE DEFICIENCY
     Dosage: 0.6 MG, DAILY
     Route: 058
     Dates: start: 20190301

REACTIONS (5)
  - Injection site pain [Unknown]
  - Asthma [Unknown]
  - Primary ciliary dyskinesia [Unknown]
  - Bronchopulmonary dysplasia [Unknown]
  - Crying [Unknown]

NARRATIVE: CASE EVENT DATE: 20190301
